FAERS Safety Report 19084585 (Version 1)
Quarter: 2021Q2

REPORT INFORMATION
  Report Type: Spontaneous
  Country: US (occurrence: US)
  Receive Date: 20210401
  Receipt Date: 20210401
  Transmission Date: 20210717
  Serious: No
  Sender: FDA-Public Use
  Company Number: US-IBSA PHARMA-2020-IBS-00664

PATIENT

DRUGS (3)
  1. PRILOSEC [Suspect]
     Active Substance: OMEPRAZOLE MAGNESIUM
  2. DICLOFENAC [Suspect]
     Active Substance: DICLOFENAC
     Route: 061
  3. AMOXICILLIN. [Suspect]
     Active Substance: AMOXICILLIN

REACTIONS (1)
  - Drug hypersensitivity [Unknown]
